FAERS Safety Report 5773047-0 (Version None)
Quarter: 2008Q2

REPORT INFORMATION
  Report Type: 
  Country: None (occurrence: None)
  Receive Date: 20080611
  Receipt Date: 20080603
  Transmission Date: 20081010
  Serious: Yes (Hospitalization)
  Sender: FDA-Public Use
  Company Number: 2008BI009079

PATIENT
  Age: 57 Year
  Sex: Female
  Weight: 127.4608 kg

DRUGS (5)
  1. TYSABRI [Suspect]
     Indication: MULTIPLE SCLEROSIS
     Dosage: 300 MG;QM;IV
     Route: 042
     Dates: start: 20080112
  2. RESTORIL [Concomitant]
  3. LEXAPRO [Concomitant]
  4. VICODIN [Concomitant]
  5. ATARAX [Concomitant]

REACTIONS (9)
  - ACCIDENT [None]
  - BONE FRAGMENTATION [None]
  - DIPLOPIA [None]
  - FACIAL BONES FRACTURE [None]
  - FALL [None]
  - MUSCULOSKELETAL PAIN [None]
  - NASAL OEDEMA [None]
  - PERIORBITAL HAEMATOMA [None]
  - TYPE 2 DIABETES MELLITUS [None]
